FAERS Safety Report 6999858-1 (Version None)
Quarter: 2010Q3

REPORT INFORMATION
  Report Type: 
  Country: None (occurrence: None)
  Receive Date: 20100920
  Receipt Date: 20070822
  Transmission Date: 20110219
  Serious: No
  Sender: FDA-Public Use
  Company Number: US-ASTRAZENECA-2006UW08118

PATIENT
  Age: 22 Year
  Sex: Female
  Weight: 81.6 kg

DRUGS (31)
  1. SEROQUEL [Suspect]
     Indication: BIPOLAR DISORDER
     Route: 048
     Dates: start: 19980101, end: 20030101
  2. SEROQUEL [Suspect]
     Indication: DEPRESSION
     Route: 048
     Dates: start: 19980101, end: 20030101
  3. SEROQUEL [Suspect]
     Indication: INSOMNIA
     Route: 048
     Dates: start: 19980101, end: 20030101
  4. SEROQUEL [Suspect]
     Dosage: 100 MG - 400 MG
     Route: 048
     Dates: start: 20000705
  5. SEROQUEL [Suspect]
     Dosage: 100 MG - 400 MG
     Route: 048
     Dates: start: 20000705
  6. SEROQUEL [Suspect]
     Dosage: 100 MG - 400 MG
     Route: 048
     Dates: start: 20000705
  7. CLOZARIL [Concomitant]
  8. GEODON [Concomitant]
  9. NAVANE [Concomitant]
  10. STELAZINE [Concomitant]
  11. THORAZINE [Concomitant]
  12. ZYPREXA [Concomitant]
  13. CODEINE [Concomitant]
     Indication: MIGRAINE
     Dates: start: 20010222
  14. PHENOBARBITAL [Concomitant]
     Dosage: 60 MG - 80 MG
     Dates: start: 19980918
  15. DILANTIN [Concomitant]
     Dates: start: 20011113
  16. LAMICTAL [Concomitant]
     Dosage: 150 MG - 800 MG
     Dates: start: 20011113
  17. SYNTHROID [Concomitant]
     Dosage: 50 MG - 75 MG
     Dates: start: 20000106
  18. ATIVAN [Concomitant]
     Dates: start: 20010222
  19. HALDOL [Concomitant]
     Dates: start: 20010222
  20. COGENTIN [Concomitant]
     Dates: start: 20010222
  21. DEPAKOTE [Concomitant]
     Dates: start: 19991001
  22. RESTORIL [Concomitant]
     Dates: start: 19980918
  23. PAXIL [Concomitant]
     Dates: start: 19980918
  24. THEO-DUR [Concomitant]
     Dates: start: 19980901
  25. ZEBETA [Concomitant]
     Dates: start: 19980918
  26. CARDURA [Concomitant]
     Dates: start: 19980918
  27. RISPERDAL [Concomitant]
     Dates: start: 19980918
  28. TENORMIN [Concomitant]
     Dates: start: 19981014
  29. LITHIUM [Concomitant]
     Dates: start: 19901007
  30. ELAVIL [Concomitant]
     Dates: start: 19901207
  31. MELLARIL [Concomitant]
     Dates: start: 19901207

REACTIONS (5)
  - ADVERSE DRUG REACTION [None]
  - DIABETES MELLITUS [None]
  - DRUG EXPOSURE DURING PREGNANCY [None]
  - GESTATIONAL DIABETES [None]
  - TYPE 2 DIABETES MELLITUS [None]
